FAERS Safety Report 21728958 (Version 1)
Quarter: 2022Q4

REPORT INFORMATION
  Report Type: Spontaneous
  Country: US (occurrence: US)
  Receive Date: 20221214
  Receipt Date: 20221214
  Transmission Date: 20230112
  Serious: No
  Sender: FDA-Public Use
  Company Number: US-TEVA-2022-US-2833365

PATIENT

DRUGS (1)
  1. FAMOTIDINE [Suspect]
     Active Substance: FAMOTIDINE
     Indication: Gastrooesophageal reflux disease
     Route: 065

REACTIONS (7)
  - Gastrooesophageal reflux disease [Unknown]
  - Regurgitation [Unknown]
  - Insomnia [Unknown]
  - Headache [Unknown]
  - Paranasal sinus discomfort [Unknown]
  - Inflammation [Unknown]
  - Drug ineffective [Unknown]
